FAERS Safety Report 5186222-3 (Version None)
Quarter: 2006Q4

REPORT INFORMATION
  Report Type: 
  Country: None (occurrence: None)
  Receive Date: 20061220
  Receipt Date: 20060524
  Transmission Date: 20070319
  Serious: Yes (Life-Threatening, Hospitalization, Other)
  Sender: FDA-Public Use
  Company Number: US-GLAXOSMITHKLINE-A0606951A

PATIENT
  Age: 71 Year
  Sex: Male
  Weight: 72.3 kg

DRUGS (2)
  1. BEXXAR [Suspect]
     Indication: NON-HODGKIN'S LYMPHOMA
     Route: 042
     Dates: start: 20060301, end: 20060301
  2. ACTONEL [Concomitant]
     Dosage: 35MG WEEKLY
     Route: 048

REACTIONS (8)
  - ANAEMIA [None]
  - BONE MARROW FAILURE [None]
  - FATIGUE [None]
  - FEBRILE NEUTROPENIA [None]
  - INFECTION [None]
  - NEUTROPENIA [None]
  - PANCYTOPENIA [None]
  - THROMBOCYTOPENIA [None]
